FAERS Safety Report 6921071-4 (Version None)
Quarter: 2010Q3

REPORT INFORMATION
  Report Type: 
  Country: None (occurrence: None)
  Receive Date: 20100804
  Receipt Date: 20090731
  Transmission Date: 20110219
  Serious: No
  Sender: FDA-Public Use
  Company Number: 2009-1816

PATIENT
  Age: 52 Year
  Sex: Male

DRUGS (1)
  1. SOMATULINE DEPOT [Suspect]
     Indication: ACROMEGALY
     Dosage: (120 MG, 1 IN 1 M), SUBCUTANEOUS
     Route: 058
     Dates: start: 20070101

REACTIONS (2)
  - NAUSEA [None]
  - VOMITING [None]
